FAERS Safety Report 16838967 (Version 1)
Quarter: 2019Q3

REPORT INFORMATION
  Report Type: Spontaneous
  Country: US (occurrence: US)
  Receive Date: 20190923
  Receipt Date: 20190923
  Transmission Date: 20191005
  Serious: Yes (Other)
  Sender: FDA-Public Use
  Company Number: US-ELI_LILLY_AND_COMPANY-US201909008627

PATIENT
  Sex: Female

DRUGS (2)
  1. IXEKIZUMAB [Suspect]
     Active Substance: IXEKIZUMAB
     Dosage: 80 MG, OTHER
     Route: 058
  2. IXEKIZUMAB [Suspect]
     Active Substance: IXEKIZUMAB
     Indication: PSORIASIS
     Dosage: 160 MG, OTHER
     Route: 058
     Dates: start: 20190412

REACTIONS (5)
  - Abdominal pain [Recovered/Resolved]
  - Nephrolithiasis [Unknown]
  - Injection site pain [Unknown]
  - Hot flush [Unknown]
  - Injection site reaction [Unknown]

NARRATIVE: CASE EVENT DATE: 201904
